FAERS Safety Report 10525877 (Version 1)
Quarter: 2014Q4

REPORT INFORMATION
  Report Type: Spontaneous
  Country: US (occurrence: US)
  Receive Date: 20141017
  Receipt Date: 20141017
  Transmission Date: 20150528
  Serious: Yes (Other)
  Sender: FDA-Public Use
  Company Number: PHEH2014US020701

PATIENT
  Age: 19 Year
  Sex: Male

DRUGS (5)
  1. TRILEPTAL [Suspect]
     Active Substance: OXCARBAZEPINE
     Indication: PRODUCT USED FOR UNKNOWN INDICATION
     Route: 065
  2. DEPAKOTE [Suspect]
     Active Substance: DIVALPROEX SODIUM
     Indication: PRODUCT USED FOR UNKNOWN INDICATION
     Route: 065
  3. TOPAMAX [Suspect]
     Active Substance: TOPIRAMATE
     Indication: PRODUCT USED FOR UNKNOWN INDICATION
     Route: 065
  4. VIMPAT [Suspect]
     Active Substance: LACOSAMIDE
     Indication: PRODUCT USED FOR UNKNOWN INDICATION
     Dosage: UNK
     Route: 065
  5. VIMPAT [Suspect]
     Active Substance: LACOSAMIDE
     Dosage: DDOSE INCREASED
     Route: 065

REACTIONS (5)
  - Concomitant disease aggravated [Unknown]
  - Seizure [Unknown]
  - Irritability [Unknown]
  - Aggression [Unknown]
  - Abnormal behaviour [Unknown]
